FAERS Safety Report 4609684-6 (Version None)
Quarter: 2005Q1

REPORT INFORMATION
  Report Type: 
  Country: None (occurrence: None)
  Receive Date: 20050316
  Receipt Date: 20050314
  Transmission Date: 20050727
  Serious: Yes (Other)
  Sender: FDA-Public Use
  Company Number: DE-GLAXOSMITHKLINE-D0046149A

PATIENT
  Sex: Female

DRUGS (2)
  1. AVANDAMET [Suspect]
     Dosage: 1TAB TWICE PER DAY
     Route: 065
     Dates: start: 20050201
  2. INSULIN [Concomitant]
     Dosage: 11IU PER DAY
     Route: 065

REACTIONS (3)
  - ABDOMINAL DISCOMFORT [None]
  - CHILLS [None]
  - HYPOGLYCAEMIA [None]
